FAERS Safety Report 7135291-X (Version None)
Quarter: 2010Q4

REPORT INFORMATION
  Report Type: 
  Country: None (occurrence: None)
  Receive Date: 20101203
  Receipt Date: 20101129
  Transmission Date: 20110411
  Serious: Yes (Death)
  Sender: FDA-Public Use
  Company Number: A0897501A

PATIENT
  Age: 47 Year
  Sex: Female

DRUGS (3)
  1. PROMACTA [Suspect]
  2. CORTICOSTEROIDS [Concomitant]
  3. ROMIPLOSTIM [Concomitant]

REACTIONS (1)
  - HEPATIC FAILURE [None]
